FAERS Safety Report 18530463 (Version 2)
Quarter: 2021Q2

REPORT INFORMATION
  Report Type: Spontaneous
  Country: US (occurrence: US)
  Receive Date: 20201121
  Receipt Date: 20210417
  Transmission Date: 20210717
  Serious: Yes (Death, Other)
  Sender: FDA-Public Use
  Company Number: US-LUPIN PHARMACEUTICALS INC.-2020-09176

PATIENT
  Sex: Female

DRUGS (22)
  1. MEROPENEM. [Suspect]
     Active Substance: MEROPENEM
     Indication: ANTIBIOTIC THERAPY
     Dosage: UNK 9DURING SECOND PHASE (HCT))
     Route: 065
  2. MEROPENEM. [Suspect]
     Active Substance: MEROPENEM
     Dosage: UNK DURING REMISSION AFTER HCT
     Route: 065
  3. AMIKACIN. [Suspect]
     Active Substance: AMIKACIN
     Indication: ANTIBIOTIC THERAPY
     Dosage: UNK (DURING FIRST INDUCTION CHEMOTHERAPY AL1)
     Route: 065
  4. LEVOFLOXACIN. [Suspect]
     Active Substance: LEVOFLOXACIN
     Dosage: UNK IN BETWEEN THE AL1 AND HCT PHASE
     Route: 065
  5. LEVOFLOXACIN. [Suspect]
     Active Substance: LEVOFLOXACIN
     Dosage: UNK DURING THIRD PHASE AL2
     Route: 065
  6. VANCOMYCIN [Suspect]
     Active Substance: VANCOMYCIN
     Indication: ANTIBIOTIC THERAPY
     Dosage: UNK (DURING FIRST INDUCTION CHEMOTHERAPY AL1)
     Route: 042
  7. SULFAMETHOXAZOLE AND TRIMETHOPRIM [Suspect]
     Active Substance: SULFAMETHOXAZOLE\TRIMETHOPRIM
     Indication: ANTIBIOTIC THERAPY
     Dosage: UNK (DURING REMISSION AFTER HCT PHASE)
     Route: 065
  8. CEFEPIME [Suspect]
     Active Substance: CEFEPIME HYDROCHLORIDE
     Indication: ANTIBIOTIC THERAPY
     Dosage: UNK (DURING FIRST INDUCTION CHEMOTHERAPY AL1)
     Route: 065
  9. CEFEPIME [Suspect]
     Active Substance: CEFEPIME HYDROCHLORIDE
     Dosage: UNK (DURING THIRD PHASE AL2)
     Route: 065
  10. LEVOFLOXACIN. [Suspect]
     Active Substance: LEVOFLOXACIN
     Dosage: UNK DURING SECOND PHASE (HCT)
     Route: 065
  11. LEVOFLOXACIN. [Suspect]
     Active Substance: LEVOFLOXACIN
     Indication: ANTIBIOTIC THERAPY
     Dosage: UNK DURING FIRST INDUCTION CHEMOTHERAPY AL1
     Route: 065
  12. AZITHROMYCIN ANHYDROUS. [Suspect]
     Active Substance: AZITHROMYCIN ANHYDROUS
     Indication: ANTIBIOTIC THERAPY
     Dosage: UNK (DURING FIRST INDUCTION CHEMOTHERAPY AL1)
     Route: 065
  13. METRONIDAZOLE. [Suspect]
     Active Substance: METRONIDAZOLE
     Indication: ANTIBIOTIC THERAPY
     Dosage: UNK (DURING FIRST INDUCTION CHEMOTHERAPY AL1)
     Route: 065
  14. CIPROFLOXACIN. [Suspect]
     Active Substance: CIPROFLOXACIN
     Indication: ANTIBIOTIC THERAPY
     Dosage: UNK DURING REMISSION AFTER HCT PHASE
     Route: 065
  15. LEVOFLOXACIN. [Suspect]
     Active Substance: LEVOFLOXACIN
     Dosage: UNK DURING REMISSION AFTER HCT
     Route: 065
  16. VANCOMYCIN [Suspect]
     Active Substance: VANCOMYCIN
     Dosage: UNK (DURING SECOND PHASE (HCT))
     Route: 042
  17. AZITHROMYCIN ANHYDROUS. [Suspect]
     Active Substance: AZITHROMYCIN ANHYDROUS
     Dosage: UNK  (DURING THIRD PHASE AL2)
     Route: 065
  18. VANCOMYCIN [Suspect]
     Active Substance: VANCOMYCIN
     Dosage: UNK (DURING THIRD PHASE AL2)
     Route: 042
  19. CEFEPIME [Suspect]
     Active Substance: CEFEPIME HYDROCHLORIDE
     Dosage: UNK (DURING SECOND PHASE (HCT))
     Route: 065
  20. CEFEPIME [Suspect]
     Active Substance: CEFEPIME HYDROCHLORIDE
     Dosage: UNK (DURING REMISSION AFTER HCT)
     Route: 065
  21. AMIKACIN. [Suspect]
     Active Substance: AMIKACIN
     Dosage: UNK (DURING SECOND PHASE (HCT))
     Route: 065
  22. AMIKACIN. [Suspect]
     Active Substance: AMIKACIN
     Dosage: UNK (DURING REMISSION AFTER HCT)
     Route: 065

REACTIONS (2)
  - Clostridium difficile colitis [Fatal]
  - Dysbiosis [Fatal]
